FAERS Safety Report 8406291-4 (Version None)
Quarter: 2012Q2

REPORT INFORMATION
  Report Type: 
  Country: None (occurrence: None)
  Receive Date: 20120529
  Receipt Date: 20090507
  Transmission Date: 20120825
  Serious: Yes (Death)
  Sender: FDA-Public Use
  Company Number: JP-2012-12313

PATIENT
  Age: 63 Year
  Sex: Female

DRUGS (2)
  1. WARFARIN SODIUM [Suspect]
     Dosage: 1.5 MG MILLIGRAM(S), BID
  2. PLETAL [Suspect]
     Dosage: 50 MG MILLIGRAM(S), QID

REACTIONS (2)
  - SHOCK HAEMORRHAGIC [None]
  - HAEMORRHAGE [None]
